FAERS Safety Report 8609614-6 (Version None)
Quarter: 2012Q3

REPORT INFORMATION
  Report Type: 
  Country: None (occurrence: None)
  Receive Date: 20120821
  Receipt Date: 20120807
  Transmission Date: 20120928
  Serious: Yes (Other)
  Sender: FDA-Public Use
  Company Number: US-WATSON-2012-13689

PATIENT
  Sex: Female
  Weight: 62 kg

DRUGS (1)
  1. CRINONE [Suspect]
     Indication: PREGNANCY
     Dosage: ONCE A DAY
     Route: 067
     Dates: start: 20120727, end: 20120805

REACTIONS (6)
  - MATERNAL EXPOSURE DURING PREGNANCY [None]
  - VAGINAL DISCHARGE [None]
  - ABDOMINAL PAIN [None]
  - ECTOPIC PREGNANCY [None]
  - ABDOMINAL PAIN LOWER [None]
  - VAGINAL HAEMORRHAGE [None]
